FAERS Safety Report 9026943 (Version 1)
Quarter: 2013Q1

REPORT INFORMATION
  Report Type: Spontaneous
  Country: US (occurrence: US)
  Receive Date: 20130123
  Receipt Date: 20130123
  Transmission Date: 20140127
  Serious: Yes (Other)
  Sender: FDA-Public Use
  Company Number: US-JNJFOC-20130110693

PATIENT
  Sex: Male

DRUGS (1)
  1. NICOTINE POLACRILEX GUM 2 MG [Suspect]
     Indication: PRODUCT USED FOR UNKNOWN INDICATION
     Route: 065

REACTIONS (2)
  - Nicotine dependence [Unknown]
  - Drug administration error [Unknown]
